FAERS Safety Report 9752758 (Version 3)
Quarter: 2014Q1

REPORT INFORMATION
  Report Type: Spontaneous
  Country: US (occurrence: US)
  Receive Date: 20131213
  Receipt Date: 20140107
  Transmission Date: 20141002
  Serious: Yes (Other)
  Sender: FDA-Public Use
  Company Number: US-PFIZER INC-2013292920

PATIENT
  Age: 61 Year
  Sex: Female

DRUGS (18)
  1. EFFEXOR XR [Suspect]
     Dosage: 300 MG, DAILY
     Route: 048
  2. TYLENOL EXTRA-STRENGTH [Concomitant]
     Indication: ARTHRITIS
     Dosage: UNK
  3. ADDERALL XR [Concomitant]
     Dosage: UNK
  4. DEPAKOTE [Concomitant]
     Dosage: UNK
  5. ESTROPIPATE [Concomitant]
     Dosage: UNK
  6. GENTEAL [Concomitant]
     Dosage: UNK
  7. GLUCOPHAGE XR [Concomitant]
     Dosage: UNK
  8. LEVEMIR [Concomitant]
     Dosage: UNK
  9. LEXAPRO [Concomitant]
     Dosage: UNK
  10. LIPITOR [Concomitant]
     Dosage: UNK
  11. MACRODANTIN [Concomitant]
     Dosage: UNK
  12. PREVACID [Concomitant]
     Dosage: UNK
  13. SYSTANE [Concomitant]
     Dosage: UNK
  14. TRAMADOL HYDROCHLORIDE [Concomitant]
     Dosage: UNK
  15. SYNTHROID [Concomitant]
     Dosage: UNK
  16. GLYBURIDE [Concomitant]
  17. LISINOPRIL [Concomitant]
  18. SEROQUEL [Concomitant]

REACTIONS (1)
  - Brain injury [Unknown]
